FAERS Safety Report 15604569 (Version 3)
Quarter: 2019Q1

REPORT INFORMATION
  Report Type: Spontaneous
  Country: US (occurrence: US)
  Receive Date: 20181110
  Receipt Date: 20190102
  Transmission Date: 20190417
  Serious: No
  Sender: FDA-Public Use
  Company Number: US-UNITED THERAPEUTICS-UNT-2018-018242

PATIENT
  Sex: Female

DRUGS (1)
  1. ORENITRAM [Suspect]
     Active Substance: TREPROSTINIL
     Indication: PULMONARY ARTERIAL HYPERTENSION
     Dosage: 0.125 MG, TID
     Route: 048
     Dates: start: 20181016

REACTIONS (11)
  - Productive cough [Unknown]
  - Headache [Unknown]
  - Oropharyngeal pain [Unknown]
  - Wheezing [Unknown]
  - Heart rate increased [Unknown]
  - Dyspnoea [Unknown]
  - Feeling abnormal [Unknown]
  - Ear infection [Unknown]
  - Chest pain [Unknown]
  - Influenza like illness [Unknown]
  - Insomnia [Unknown]

NARRATIVE: CASE EVENT DATE: 2018
